FAERS Safety Report 13177521 (Version 1)
Quarter: 2017Q1

REPORT INFORMATION
  Report Type: Report from Study
  Country: US (occurrence: US)
  Receive Date: 20170201
  Receipt Date: 20170201
  Transmission Date: 20170428
  Serious: No
  Sender: FDA-Public Use
  Company Number: US-EXELIXIS-CABO-16006432

PATIENT
  Sex: Male

DRUGS (16)
  1. METOPROLOL. [Concomitant]
     Active Substance: METOPROLOL
  2. MECLIZINE [Concomitant]
     Active Substance: MECLIZINE HYDROCHLORIDE
  3. COMPAZINE [Concomitant]
     Active Substance: PROCHLORPERAZINE MALEATE
  4. COMETRIQ [Suspect]
     Active Substance: CABOZANTINIB S-MALATE
     Indication: RENAL CELL CARCINOMA
     Dosage: 60 MG, QD
     Route: 048
     Dates: start: 20160428
  5. OXYCODONE [Concomitant]
     Active Substance: OXYCODONE
  6. FISH OIL [Concomitant]
     Active Substance: FISH OIL
  7. HYDROCODONE [Concomitant]
     Active Substance: HYDROCODONE
  8. XANAX [Concomitant]
     Active Substance: ALPRAZOLAM
  9. NITROGLYCERINE [Concomitant]
     Active Substance: NITROGLYCERIN
  10. KEPPRA [Concomitant]
     Active Substance: LEVETIRACETAM
  11. FENTANYL. [Concomitant]
     Active Substance: FENTANYL
  12. LOSARTAN. [Concomitant]
     Active Substance: LOSARTAN
  13. AMBIEN [Concomitant]
     Active Substance: ZOLPIDEM TARTRATE
  14. DOCUSATE SODIUM. [Concomitant]
     Active Substance: DOCUSATE SODIUM
  15. CENTRUM SILVER [Concomitant]
     Active Substance: MINERALS\VITAMINS
  16. DEXAMETHASONE. [Concomitant]
     Active Substance: DEXAMETHASONE

REACTIONS (3)
  - Hypersomnia [Unknown]
  - Confusional state [Unknown]
  - Off label use [Unknown]
